FAERS Safety Report 8836052 (Version 1)
Quarter: 2012Q4

REPORT INFORMATION
  Report Type: 
  Country: PL (occurrence: PL)
  Receive Date: 20121011
  Receipt Date: 20121011
  Transmission Date: 20130627
  Serious: Yes (Hospitalization)
  Sender: FDA-Public Use
  Company Number: PL-COVIDIEN/TYCO HEALTHCARE/MALLINCKRODT-T201203557

PATIENT
  Age: 52 Year
  Sex: Female

DRUGS (3)
  1. FENTANYL TRANSDERMAL SYSTEM [Suspect]
     Dosage: 50 ug, qd
  2. VENLAFAXINE [Suspect]
     Dosage: 150 mg, qd
  3. METOCLOPRAMIDE [Suspect]
     Dosage: 30 mg, qd

REACTIONS (1)
  - Serotonin syndrome [Unknown]
